FAERS Safety Report 7819686-4 (Version None)
Quarter: 2011Q4

REPORT INFORMATION
  Report Type: 
  Country: None (occurrence: None)
  Receive Date: 20111018
  Receipt Date: 20110524
  Transmission Date: 20120403
  Serious: No
  Sender: FDA-Public Use
  Company Number: US-ASTRAZENECA-2011SE25362

PATIENT
  Age: 73 Year
  Sex: Female
  Weight: 104.3 kg

DRUGS (8)
  1. SYMBICORT [Suspect]
     Indication: CHRONIC OBSTRUCTIVE PULMONARY DISEASE
     Dosage: 160/4.5 MCG, TWO TIMES A DAY
     Route: 055
     Dates: start: 20090101
  2. GLIPIZIDE [Concomitant]
  3. PROAIR HFA [Concomitant]
  4. VENTOLIN [Concomitant]
  5. SYMBICORT [Suspect]
     Indication: ASTHMA
     Dosage: 160/4.5 MCG, TWO TIMES A DAY
     Route: 055
     Dates: start: 20090101
  6. DIOVAN [Concomitant]
  7. METOPROLOL TARTRATE [Concomitant]
  8. FUROSEMIDE [Concomitant]

REACTIONS (2)
  - EYE DISORDER [None]
  - INCORRECT DOSE ADMINISTERED [None]
